FAERS Safety Report 25651209 (Version 1)
Quarter: 2025Q3

REPORT INFORMATION
  Report Type: Spontaneous
  Country: US (occurrence: US)
  Receive Date: 20250806
  Receipt Date: 20250806
  Transmission Date: 20251021
  Serious: Yes (Other)
  Sender: PFIZER
  Company Number: US-PFIZER INC-202500157409

PATIENT
  Age: 78 Year
  Sex: Female

DRUGS (8)
  1. IBRANCE [Suspect]
     Active Substance: PALBOCICLIB
     Route: 048
     Dates: start: 2022
  2. LETROZOLE [Suspect]
     Active Substance: LETROZOLE
     Dosage: AT NIGHT 1 PILL DAILY WITH SNACK OR FOOD
     Route: 048
  3. VITAMIN B12 [Concomitant]
     Active Substance: CYANOCOBALAMIN
     Dosage: EVERY 4 WEEKS
  4. VITAMIN B12 [Concomitant]
     Active Substance: CYANOCOBALAMIN
     Dates: start: 2024
  5. XGEVA [Concomitant]
     Active Substance: DENOSUMAB
     Indication: Bone disorder
     Dosage: EVERY 4 WEEKS
  6. XGEVA [Concomitant]
     Active Substance: DENOSUMAB
  7. VITAMIN B COMPLEX [Concomitant]
     Active Substance: CYANOCOBALAMIN\DEXPANTHENOL\NIACINAMIDE\PYRIDOXINE HYDROCHLORIDE\RIBOFLAVIN 5^-PHOSPHATE SODIUM\THIA
     Dosage: UNK, DAILY
     Route: 048
  8. CALCIUM [Concomitant]
     Active Substance: CALCIUM
     Dosage: UNK, DAILY
     Route: 048

REACTIONS (14)
  - Thrombosis [Unknown]
  - Blood iron decreased [Unknown]
  - Fatigue [Recovering/Resolving]
  - Body temperature decreased [Recovering/Resolving]
  - Arthralgia [Recovering/Resolving]
  - Myalgia [Recovering/Resolving]
  - Movement disorder [Unknown]
  - Peripheral swelling [Unknown]
  - Actinic keratosis [Unknown]
  - Rash [Unknown]
  - Condition aggravated [Unknown]
  - Foot deformity [Unknown]
  - Genital cyst [Unknown]
  - Ocular cyst [Unknown]

NARRATIVE: CASE EVENT DATE: 20250724
